FAERS Safety Report 4741874-4 (Version None)
Quarter: 2005Q3

REPORT INFORMATION
  Report Type: 
  Country: None (occurrence: None)
  Receive Date: 20050803
  Receipt Date: 20041206
  Transmission Date: 20060218
  Serious: Yes (Death)
  Sender: FDA-Public Use
  Company Number: 2005000057

PATIENT
  Sex: 0

DRUGS (1)
  1. CAMPTOSAR [Suspect]
     Indication: ILL-DEFINED DISORDER
     Dosage: 350 MG/M*2, 350 MG/M^2 EVERY 3 WEEKS), INTRAVENOUS
     Route: 042

REACTIONS (1)
  - DIARRHOEA [None]
